FAERS Safety Report 23879547 (Version 1)
Quarter: 2024Q2

REPORT INFORMATION
  Report Type: Spontaneous
  Country: US (occurrence: US)
  Receive Date: 20240521
  Receipt Date: 20240521
  Transmission Date: 20240715
  Serious: Yes (Hospitalization, Other)
  Sender: FDA-Public Use
  Company Number: US-FreseniusKabi-FK202407682

PATIENT
  Age: 72 Year
  Sex: Male

DRUGS (5)
  1. FLUDARABINE [Suspect]
     Active Substance: FLUDARABINE PHOSPHATE
     Indication: Lymphodepletion
     Dosage: FORM OF ADMIN: INFUSION?30 MILLIGRAM/SQ. METER, QD
     Route: 042
     Dates: start: 20240417, end: 20240419
  2. FLUDARABINE [Suspect]
     Active Substance: FLUDARABINE PHOSPHATE
     Dosage: FORM OF ADMIN: INFUSION?68 MILLIGRAM/SQ. METER, QD
     Route: 042
     Dates: start: 20240417, end: 20240419
  3. CYCLOPHOSPHAMIDE [Suspect]
     Active Substance: CYCLOPHOSPHAMIDE
     Indication: Lymphodepletion
     Dosage: FORM OF ADMIN: INFUSION?750 MILLIGRAM/SQ. METER, QD
     Route: 042
     Dates: start: 20240417, end: 20240419
  4. CYCLOPHOSPHAMIDE [Suspect]
     Active Substance: CYCLOPHOSPHAMIDE
     Dosage: FORM OF ADMIN: INFUSION?1700 MILLIGRAM/SQ. METER, QD
     Route: 042
     Dates: start: 20240417, end: 20240419
  5. CB-012 [Suspect]
     Active Substance: CB-012
     Indication: Acute myeloid leukaemia
     Dosage: 25 X10^6 VIABLE CAR+ CELLS, SINGLE
     Route: 042
     Dates: start: 20240422, end: 20240422

REACTIONS (5)
  - Febrile neutropenia [Recovered/Resolved]
  - Skin infection [Not Recovered/Not Resolved]
  - Enterococcal infection [Not Recovered/Not Resolved]
  - Staphylococcal infection [Not Recovered/Not Resolved]
  - Cytokine release syndrome [Recovered/Resolved]

NARRATIVE: CASE EVENT DATE: 20240503
